FAERS Safety Report 10256699 (Version 1)
Quarter: 2014Q2

REPORT INFORMATION
  Report Type: Report from Study
  Country: CH (occurrence: CH)
  Receive Date: 20140624
  Receipt Date: 20140624
  Transmission Date: 20141212
  Serious: Yes (Other)
  Sender: FDA-Public Use
  Company Number: CH-MYLANLABS-2014S1014450

PATIENT
  Age: 16 Year
  Sex: Female
  Weight: 50 kg

DRUGS (3)
  1. AZATHIOPRINE [Suspect]
     Indication: INTENTIONAL OVERDOSE
     Dosage: 625MG (12.5 MG/KG)
     Route: 065
  2. AZATHIOPRINE [Suspect]
     Indication: OFF LABEL USE
     Dosage: 625MG (12.5 MG/KG)
     Route: 065
  3. SERTRALINE [Suspect]
     Route: 065

REACTIONS (6)
  - Intentional overdose [Unknown]
  - Suicide attempt [Unknown]
  - Blood bilirubin increased [Unknown]
  - Dizziness [Unknown]
  - Tremor [Unknown]
  - Fatigue [Unknown]
